FAERS Safety Report 7656963-4 (Version None)
Quarter: 2011Q3

REPORT INFORMATION
  Report Type: 
  Country: None (occurrence: None)
  Receive Date: 20110804
  Receipt Date: 20110722
  Transmission Date: 20111222
  Serious: Yes (Hospitalization, Other)
  Sender: FDA-Public Use
  Company Number: DE-SANOFI-AVENTIS-2011SA048149

PATIENT
  Age: 73 Year
  Sex: Male
  Weight: 82 kg

DRUGS (13)
  1. AMLODIPINE [Concomitant]
     Route: 065
  2. PHENPROCOUMON [Concomitant]
     Route: 065
  3. THIAZIDES [Concomitant]
     Route: 065
  4. DIGITOXIN TAB [Concomitant]
  5. DRONEDARONE HCL [Suspect]
     Indication: ATRIAL FIBRILLATION
     Route: 048
     Dates: start: 20110324, end: 20110708
  6. VALSARTAN [Concomitant]
     Route: 065
  7. PANTOPRAZOLE [Concomitant]
  8. GLIMEPIRIDE [Concomitant]
  9. METFORMIN HCL [Concomitant]
     Route: 065
  10. ALISKIREN [Concomitant]
  11. BISOPROLOL FUMARATE [Concomitant]
     Route: 065
  12. TAMSULOSIN HCL [Concomitant]
     Route: 065
  13. CLOPIDOGREL [Concomitant]
     Route: 065

REACTIONS (3)
  - POST PROCEDURAL HAEMORRHAGE [None]
  - CAROTID ARTERY STENOSIS [None]
  - HYPERTENSION [None]
